FAERS Safety Report 9275024 (Version 1)
Quarter: 2013Q2

REPORT INFORMATION
  Report Type: Spontaneous
  Country: US (occurrence: None)
  Receive Date: 20130501
  Receipt Date: 20130501
  Transmission Date: 20140414
  Serious: Yes (Other)
  Sender: FDA-Public Use
  Company Number: None

PATIENT
  Age: 49 Year
  Sex: Female
  Weight: 72.58 kg

DRUGS (3)
  1. ESTRATEST [Suspect]
     Indication: HOT FLUSH
     Route: 048
     Dates: start: 20121206, end: 20130429
  2. ESTRATEST [Suspect]
     Indication: INSOMNIA
     Route: 048
     Dates: start: 20121206, end: 20130429
  3. ESTRATEST [Suspect]
     Indication: VULVOVAGINAL PAIN
     Route: 048
     Dates: start: 20121206, end: 20130429

REACTIONS (6)
  - Night sweats [None]
  - Mood swings [None]
  - Depression [None]
  - Local swelling [None]
  - Local swelling [None]
  - Weight increased [None]
